FAERS Safety Report 13729693 (Version 1)
Quarter: 2017Q3

REPORT INFORMATION
  Report Type: Other
  Country: NZ (occurrence: NZ)
  Receive Date: 20170707
  Receipt Date: 20170707
  Transmission Date: 20171127
  Serious: Yes (Congenital Anomaly)
  Sender: FDA-Public Use
  Company Number: NZ-ORCHID HEALTHCARE-2023062

PATIENT

DRUGS (3)
  1. ARIPIPRAZOLE (ANDA 202683) [Suspect]
     Active Substance: ARIPIPRAZOLE
     Route: 065
  2. QUETIAPINE. [Suspect]
     Active Substance: QUETIAPINE
     Route: 065
  3. RISPERIDONE. [Suspect]
     Active Substance: RISPERIDONE
     Route: 065

REACTIONS (1)
  - Talipes [Unknown]
